FAERS Safety Report 6463739-2 (Version None)
Quarter: 2009Q4

REPORT INFORMATION
  Report Type: 
  Country: None (occurrence: None)
  Receive Date: 20091123
  Receipt Date: 20091111
  Transmission Date: 20100525
  Serious: Yes (Other)
  Sender: FDA-Public Use
  Company Number: 310004L09JPN

PATIENT
  Sex: Female

DRUGS (2)
  1. GONAL-F [Suspect]
     Indication: HYPOPITUITARISM
     Dosage: 75 IU, 3 IN 1 WEEKS,
     Dates: start: 20070625
  2. CHORIONIC GONADOTROPIN [Suspect]
     Indication: HYPOPITUITARISM

REACTIONS (2)
  - ABORTION SPONTANEOUS [None]
  - DRUG EXPOSURE DURING PREGNANCY [None]
